FAERS Safety Report 7341344-3 (Version None)
Quarter: 2011Q1

REPORT INFORMATION
  Report Type: 
  Country: None (occurrence: None)
  Receive Date: 20110309
  Receipt Date: 20110225
  Transmission Date: 20110831
  Serious: Yes (Hospitalization)
  Sender: FDA-Public Use
  Company Number: KR-WATSON-2011-02710

PATIENT
  Age: 54 Year
  Sex: Female

DRUGS (1)
  1. TACROLIMUS (WATSON LABORATORIES) [Suspect]
     Indication: IMMUNOSUPPRESSION
     Dosage: .075 MG/KG, UNKNOWN
     Route: 065

REACTIONS (6)
  - DEMYELINATION [None]
  - DYSARTHRIA [None]
  - APHASIA [None]
  - HEMIPARESIS [None]
  - MENTAL STATUS CHANGES [None]
  - HEMIPLEGIA [None]
